FAERS Safety Report 18050685 (Version 2)
Quarter: 2020Q3

REPORT INFORMATION
  Report Type: Spontaneous
  Country: US (occurrence: US)
  Receive Date: 20200721
  Receipt Date: 20200803
  Transmission Date: 20201103
  Serious: Yes (Hospitalization)
  Sender: FDA-Public Use
  Company Number: US-INTRA-CELLULAR THERAPIES, INC.-2020ICT00046

PATIENT
  Sex: Male
  Weight: 124.26 kg

DRUGS (5)
  1. CAPLYTA [Suspect]
     Active Substance: LUMATEPERONE
     Indication: SCHIZOPHRENIA
     Dosage: 42 MG, 1X/DAY IN THE EVENING
     Route: 048
     Dates: start: 20200604, end: 20200614
  2. RISPERIDONE. [Concomitant]
     Active Substance: RISPERIDONE
  3. LAMICTAL [Concomitant]
     Active Substance: LAMOTRIGINE
  4. CAPLYTA [Suspect]
     Active Substance: LUMATEPERONE
     Dosage: 42 MG, 1X/DAY IN THE EVENINGUNK
     Route: 048
     Dates: start: 20200721
  5. LITHIUM. [Suspect]
     Active Substance: LITHIUM

REACTIONS (1)
  - Therapy cessation [Recovered/Resolved]

NARRATIVE: CASE EVENT DATE: 20200614
